FAERS Safety Report 17070871 (Version 1)
Quarter: 2019Q4

REPORT INFORMATION
  Report Type: Spontaneous
  Country: SA (occurrence: SA)
  Receive Date: 20191125
  Receipt Date: 20191125
  Transmission Date: 20200122
  Serious: Yes (Hospitalization)
  Sender: FDA-Public Use
  Company Number: SA-ASTRAZENECA-2019SF67386

PATIENT
  Age: 30 Year
  Sex: Female

DRUGS (1)
  1. LYNPARZA [Suspect]
     Active Substance: OLAPARIB
     Indication: OVARIAN CANCER
     Dosage: 400.0MG UNKNOWN
     Route: 048

REACTIONS (3)
  - Lip oedema [Unknown]
  - Hypersensitivity [Unknown]
  - Rash [Unknown]
